FAERS Safety Report 9783087 (Version 1)
Quarter: 2013Q4

REPORT INFORMATION
  Report Type: Spontaneous
  Country: SK (occurrence: None)
  Receive Date: 20131223
  Receipt Date: 20131223
  Transmission Date: 20140711
  Serious: Yes (Life-Threatening)
  Sender: FDA-Public Use
  Company Number: WIL-006-13-SK

PATIENT
  Age: 39 Year
  Sex: Female

DRUGS (5)
  1. WILATE [Suspect]
     Indication: VON WILLEBRAND^S DISEASE
     Route: 042
     Dates: start: 20130402, end: 20130402
  2. FAMOTIDINE [Suspect]
     Indication: DUODENAL ULCER
     Route: 042
     Dates: start: 20130402, end: 20130402
  3. HYDROCORTISONE [Concomitant]
  4. OMEPRAZOLE [Concomitant]
  5. RED BLOOD CELLS [Concomitant]

REACTIONS (5)
  - Dyspepsia [None]
  - Ulcer haemorrhage [None]
  - Haemoglobin decreased [None]
  - Anaphylactic reaction [None]
  - Infusion site pain [None]
